FAERS Safety Report 9237209 (Version 3)
Quarter: 2014Q2

REPORT INFORMATION
  Report Type: Spontaneous
  Country: US (occurrence: US)
  Receive Date: 20130417
  Receipt Date: 20140527
  Transmission Date: 20141212
  Serious: No
  Sender: FDA-Public Use
  Company Number: US-PFIZER INC-2013118691

PATIENT
  Age: 78 Year
  Sex: Female

DRUGS (22)
  1. LYRICA [Suspect]
     Dosage: 100 MG, (1 PILL) (NOON DAILY)
     Route: 048
  2. LYRICA [Suspect]
     Dosage: 150 MG, 2X/DAY (EVERY 12 HRS)
  3. LYRICA [Suspect]
     Dosage: 150 MG, 2X/DAY
     Route: 048
  4. LYRICA [Suspect]
     Dosage: 50 MG, 2X/DAY (TWO PO @ NOON EACH DAY)
     Route: 048
  5. TYLENOL [Concomitant]
     Dosage: AS NEEDED
  6. GAS-X [Concomitant]
     Dosage: AS NEEDED
  7. GLIMEPIRIDE [Concomitant]
     Dosage: 2 MG, 1X/DAY
  8. FUROSEMIDE [Concomitant]
     Dosage: 40 MG, 1X/DAY
  9. KLOR CON [Concomitant]
     Dosage: 2 DF, 3X/DAY
  10. WARFARIN SODIUM [Concomitant]
     Dosage: 2.5 MG, UNK (ON SUNDAY + WED +. FRIDAY A WHOLE TABLET / + HALF ON ALL OTHER DAYS TABLET)
  11. CYANOCOBALAMIN [Concomitant]
     Dosage: 1000 UG/ML, MONTHLY
  12. METOLAZONE [Concomitant]
     Dosage: 2.5 MG, UNK
  13. NIACIN [Concomitant]
     Dosage: 500 (3X/DAY)
  14. ACIPHEX [Concomitant]
     Dosage: 20 MG, 2X/DAY
  15. HYDROCODONE W/ACETAMINOPHEN [Concomitant]
     Indication: PAIN
     Dosage: (HYDROCODONE BITARTRATE 5, PARACETAMOL 325) UNK, 4X/DAY
  16. NITRO [Concomitant]
     Indication: CHEST PAIN
     Dosage: AS NEEDED
  17. OMNARIS [Concomitant]
     Dosage: 1XDAY
  18. TRIAMCINOLONE ACETONIDE [Concomitant]
     Indication: RASH
     Dosage: AS NEEDED
  19. LIDOCAINE [Concomitant]
     Dosage: 2XDAY
  20. LIDODERM PATCH [Concomitant]
     Indication: PAIN
     Dosage: AS NEEDED
  21. FLECTOR PATCH [Concomitant]
     Indication: PAIN
     Dosage: AS NEEDED
  22. DIPHENOXYLATE W/ATROPINE SULFATE [Concomitant]
     Indication: DIARRHOEA
     Dosage: AS NEEDED

REACTIONS (1)
  - Reaction to colouring [Unknown]
